FAERS Safety Report 10416344 (Version 1)
Quarter: 2014Q3

REPORT INFORMATION
  Report Type: Spontaneous
  Country: US (occurrence: None)
  Receive Date: 20140827
  Receipt Date: 20140827
  Transmission Date: 20150326
  Serious: No
  Sender: FDA-Public Use
  Company Number: None

PATIENT
  Age: 66 Year
  Sex: Male
  Weight: 117.94 kg

DRUGS (1)
  1. VOLTAREN [Suspect]
     Active Substance: DICLOFENAC SODIUM
     Indication: PLANTAR FASCIITIS
     Dosage: 4 G, THREE TIMES DAILY, APPLIED TO A SURFACE USUALLY THE SKIN
     Dates: start: 20140725, end: 20140729

REACTIONS (1)
  - Rash [None]

NARRATIVE: CASE EVENT DATE: 20140725
